FAERS Safety Report 23804955 (Version 6)
Quarter: 2025Q3

REPORT INFORMATION
  Report Type: Other
  Country: EU (occurrence: EU)
  Receive Date: 20240501
  Receipt Date: 20250912
  Transmission Date: 20251021
  Serious: Yes (Hospitalization, Disabling, Other)
  Sender: DENTSPLY
  Company Number: EU-DENTSPLY-2024SCDP000122

PATIENT
  Age: 24 Year
  Sex: Male

DRUGS (28)
  1. LIDOCAINE [Suspect]
     Active Substance: LIDOCAINE
     Indication: Painful ejaculation
     Route: 042
  2. LIDOCAINE [Suspect]
     Active Substance: LIDOCAINE
     Indication: Pain
  3. CIPROFLOXACIN [Interacting]
     Active Substance: CIPROFLOXACIN
     Indication: Painful ejaculation
     Route: 048
  4. METAMIZOLE [Suspect]
     Active Substance: METAMIZOLE
     Indication: Pain
     Route: 065
  5. METAMIZOLE [Suspect]
     Active Substance: METAMIZOLE
     Indication: Painful ejaculation
  6. VALPROIC ACID [Suspect]
     Active Substance: VALPROIC ACID
     Indication: Painful ejaculation
     Route: 042
  7. VALPROIC ACID [Suspect]
     Active Substance: VALPROIC ACID
     Indication: Pain
     Route: 042
  8. MAGNESIUM SULFATE [Suspect]
     Active Substance: MAGNESIUM SULFATE
     Indication: Painful ejaculation
     Route: 065
  9. MAGNESIUM SULFATE [Suspect]
     Active Substance: MAGNESIUM SULFATE
     Indication: Pain
  10. LEVOFLOXACIN [Interacting]
     Active Substance: LEVOFLOXACIN
     Indication: Perineal pain
     Route: 048
  11. LEVOFLOXACIN [Interacting]
     Active Substance: LEVOFLOXACIN
     Indication: Depression
  12. LEVOFLOXACIN [Interacting]
     Active Substance: LEVOFLOXACIN
     Indication: Painful ejaculation
  13. MIANSERIN [Interacting]
     Active Substance: MIANSERIN
     Indication: Depression
     Route: 048
  14. MIANSERIN [Interacting]
     Active Substance: MIANSERIN
     Indication: Insomnia
  15. MIANSERIN [Interacting]
     Active Substance: MIANSERIN
     Indication: Anxiety
  16. TAMSULOSIN [Suspect]
     Active Substance: TAMSULOSIN
     Indication: Painful ejaculation
     Route: 042
  17. TAMSULOSIN [Suspect]
     Active Substance: TAMSULOSIN
     Indication: Perineal pain
  18. ESCITALOPRAM [Interacting]
     Active Substance: ESCITALOPRAM OXALATE
     Indication: Depression
     Route: 048
  19. ESCITALOPRAM [Interacting]
     Active Substance: ESCITALOPRAM OXALATE
     Indication: Insomnia
  20. SILDENAFIL [Suspect]
     Active Substance: SILDENAFIL
     Indication: Sexual dysfunction
     Route: 065
  21. SILDENAFIL [Suspect]
     Active Substance: SILDENAFIL
     Indication: Neuropathy peripheral
  22. SILDENAFIL [Suspect]
     Active Substance: SILDENAFIL
     Indication: Painful ejaculation
  23. DICLOFENAC [Suspect]
     Active Substance: DICLOFENAC
     Indication: Painful ejaculation
  24. PREGABALIN [Suspect]
     Active Substance: PREGABALIN
     Indication: Painful ejaculation
     Route: 065
  25. ALPRAZOLAM [Suspect]
     Active Substance: ALPRAZOLAM
     Indication: Anxiety
     Route: 065
  26. VORTIOXETINE [Concomitant]
     Active Substance: VORTIOXETINE
     Indication: Depression
  27. MELATONIN [Concomitant]
     Active Substance: MELATONIN
     Indication: Insomnia
     Route: 065
  28. MELATONIN [Concomitant]
     Active Substance: MELATONIN
     Indication: Depression

REACTIONS (15)
  - Painful ejaculation [Recovered/Resolved]
  - Drug interaction [Recovered/Resolved]
  - Condition aggravated [Recovered/Resolved]
  - Pain [Recovered/Resolved]
  - Perineal pain [Recovered/Resolved]
  - Groin pain [None]
  - Burning sensation [None]
  - Drug ineffective [Unknown]
  - Therapy partial responder [Unknown]
  - Therapeutic product effect incomplete [Unknown]
  - Drug-disease interaction [Recovered/Resolved]
  - Anxiety [Unknown]
  - Product use in unapproved indication [Unknown]
  - Drug ineffective for unapproved indication [Recovered/Resolved]
  - Product prescribing error [Unknown]
